FAERS Safety Report 4783515-6 (Version None)
Quarter: 2005Q3

REPORT INFORMATION
  Report Type: 
  Country: None (occurrence: None)
  Receive Date: 20050914
  Receipt Date: 20040818
  Transmission Date: 20060218
  Serious: Yes (Death)
  Sender: FDA-Public Use
  Company Number: 163-20785-04040617

PATIENT
  Age: 50 Year
  Sex: Male

DRUGS (2)
  1. THALOMID [Suspect]
     Indication: MULTIPLE MYELOMA
     Dosage: 200-400 MG, AT BEDTIME, ORAL
     Route: 048
     Dates: start: 20031101, end: 20040101
  2. DEXAMETHASONE [Concomitant]

REACTIONS (7)
  - DEATH [None]
  - DISEASE PROGRESSION [None]
  - MALAISE [None]
  - NEUROPATHY [None]
  - OEDEMA PERIPHERAL [None]
  - PAIN [None]
  - THERAPEUTIC RESPONSE UNEXPECTED [None]
